FAERS Safety Report 7243740-1 (Version None)
Quarter: 2011Q1

REPORT INFORMATION
  Report Type: 
  Country: None (occurrence: None)
  Receive Date: 20110125
  Receipt Date: 20110118
  Transmission Date: 20110831
  Serious: No
  Sender: FDA-Public Use
  Company Number: US-PFIZER INC-2011012594

PATIENT
  Sex: Female

DRUGS (3)
  1. CELEXA [Suspect]
     Dosage: UNK
  2. PRISTIQ [Suspect]
     Dosage: UNK
  3. WELLBUTRIN [Suspect]
     Dosage: UNK

REACTIONS (5)
  - HEADACHE [None]
  - PARAESTHESIA [None]
  - HYPOAESTHESIA ORAL [None]
  - NAUSEA [None]
  - PARAESTHESIA ORAL [None]
